FAERS Safety Report 24052692 (Version 2)
Quarter: 2024Q3

REPORT INFORMATION
  Report Type: Spontaneous
  Country: US (occurrence: US)
  Receive Date: 20240705
  Receipt Date: 20240805
  Transmission Date: 20241016
  Serious: No
  Sender: ROCHE
  Company Number: US-ROCHE-10000014769

PATIENT
  Age: 10 Year
  Sex: Male

DRUGS (4)
  1. XOLAIR PFS [Suspect]
     Active Substance: OMALIZUMAB
     Indication: Anaphylactic reaction
     Dosage: ONE 300MG PFS AND ONE 150MG PFS FOR EACH DOSE, ONCE A MONTH
     Route: 058
     Dates: start: 202404
  2. XOLAIR PFS [Suspect]
     Active Substance: OMALIZUMAB
  3. DESONIDE [Concomitant]
     Active Substance: DESONIDE
     Indication: Eczema
  4. TRIAMCINOLONE [Concomitant]
     Active Substance: TRIAMCINOLONE
     Indication: Eczema

REACTIONS (6)
  - Accidental underdose [Unknown]
  - Off label use [Unknown]
  - Syringe issue [Unknown]
  - Device issue [Unknown]
  - Product complaint [Unknown]
  - No adverse event [Unknown]

NARRATIVE: CASE EVENT DATE: 20240401
